FAERS Safety Report 19713211 (Version 1)
Quarter: 2021Q3

REPORT INFORMATION
  Report Type: Spontaneous
  Country: US (occurrence: US)
  Receive Date: 20210816
  Receipt Date: 20210816
  Transmission Date: 20211014
  Serious: No
  Sender: FDA-Public Use
  Company Number: None

PATIENT
  Age: 32 Year
  Sex: Male
  Weight: 108 kg

DRUGS (2)
  1. BUPRENORPHINE/NALOXONE (BUPRENORPHINE 8MG/NALOXONE 2MG TAB, SUBLINGUA [Suspect]
     Active Substance: BUPRENORPHINE\NALOXONE
     Indication: SUBSTANCE USE DISORDER
     Dates: start: 20161003
  2. ALPRAZOLAM (ALPRAZOLAM 1MG TAB) [Suspect]
     Active Substance: ALPRAZOLAM
     Indication: ANXIETY
     Dates: start: 20150826

REACTIONS (5)
  - Aspiration [None]
  - Accidental overdose [None]
  - Vomiting [None]
  - Substance use [None]
  - Refusal of treatment by patient [None]

NARRATIVE: CASE EVENT DATE: 20210702
